FAERS Safety Report 15422184 (Version 2)
Quarter: 2018Q4

REPORT INFORMATION
  Report Type: Spontaneous
  Country: DE (occurrence: DE)
  Receive Date: 20180925
  Receipt Date: 20180926
  Transmission Date: 20190204
  Serious: Yes (Other)
  Sender: FDA-Public Use
  Company Number: PHHY2018DE105521

PATIENT
  Age: 23 Year
  Sex: Female

DRUGS (2)
  1. MAXIM (DIENOGEST\ETHINYL ESTRADIOL) [Interacting]
     Active Substance: DIENOGEST\ETHINYL ESTRADIOL
     Indication: CONTRACEPTION
     Dosage: 1 DF (1 UG/LIT), QD
     Route: 048
     Dates: start: 201808
  2. LAMOTRIGINE. [Suspect]
     Active Substance: LAMOTRIGINE
     Indication: EPILEPSY
     Dosage: FOR YEARS
     Route: 048

REACTIONS (2)
  - Drug interaction [Unknown]
  - Epilepsy [Unknown]
